FAERS Safety Report 20707937 (Version 2)
Quarter: 2022Q2

REPORT INFORMATION
  Report Type: Report from Study
  Country: GR (occurrence: GR)
  Receive Date: 20220414
  Receipt Date: 20220419
  Transmission Date: 20220720
  Serious: Yes (Other)
  Sender: FDA-Public Use
  Company Number: GR-ABBVIE-22K-066-4274283-00

PATIENT
  Age: 75 Year
  Sex: Male
  Weight: 80 kg

DRUGS (4)
  1. CARBIDOPA\LEVODOPA [Suspect]
     Active Substance: CARBIDOPA\LEVODOPA
     Indication: Parkinson^s disease
     Dosage: MD: 7.5ML; CR: 3.0ML/H; ED: 1.0ML
     Route: 050
     Dates: start: 20210716, end: 20220204
  2. CARBIDOPA\LEVODOPA [Suspect]
     Active Substance: CARBIDOPA\LEVODOPA
     Dosage: MORNING DOSE: 7.5ML; CONTINUOUS RATE: 2.8ML/H; EXTRA DOSE:1.0ML
     Route: 050
     Dates: start: 20220204, end: 2022
  3. CARBIDOPA\LEVODOPA [Suspect]
     Active Substance: CARBIDOPA\LEVODOPA
     Dosage: MORNING DOSE: 7.5ML; CONTINUOUS RATE: 1.8ML/H; EXTRA DOSE: 1.0ML
     Route: 050
     Dates: start: 2022
  4. BENSERAZIDE HYDROCHLORIDE\LEVODOPA [Concomitant]
     Active Substance: BENSERAZIDE HYDROCHLORIDE\LEVODOPA
     Indication: Parkinson^s disease
     Dosage: 250 1X3

REACTIONS (9)
  - Gastrointestinal surgery [Unknown]
  - Back pain [Not Recovered/Not Resolved]
  - Device issue [Unknown]
  - Arthralgia [Not Recovered/Not Resolved]
  - Psychomotor hyperactivity [Unknown]
  - Bedridden [Not Recovered/Not Resolved]
  - Intentional product misuse [Recovered/Resolved]
  - Pain [Unknown]
  - Hyperkinesia [Not Recovered/Not Resolved]

NARRATIVE: CASE EVENT DATE: 20220101
